FAERS Safety Report 13946855 (Version 1)
Quarter: 2017Q3

REPORT INFORMATION
  Report Type: Report from Study
  Country: IL (occurrence: IL)
  Receive Date: 20170907
  Receipt Date: 20170907
  Transmission Date: 20171128
  Serious: Yes (Life-Threatening, Hospitalization, Other)
  Sender: FDA-Public Use
  Company Number: IL-ALEXION-A201709692

PATIENT

DRUGS (1)
  1. ECULIZUMAB [Suspect]
     Active Substance: ECULIZUMAB
     Indication: HAEMOLYTIC URAEMIC SYNDROME
     Dosage: 300 MG, Q3W
     Route: 065
     Dates: start: 20161001

REACTIONS (1)
  - Pneumocystis jirovecii infection [Recovered/Resolved]

NARRATIVE: CASE EVENT DATE: 20170118
